FAERS Safety Report 12885519 (Version 1)
Quarter: 2016Q4

REPORT INFORMATION
  Report Type: Report from Study
  Country: IN (occurrence: IN)
  Receive Date: 20161026
  Receipt Date: 20161026
  Transmission Date: 20170207
  Serious: Yes (Hospitalization)
  Sender: FDA-Public Use
  Company Number: IN-ROCHE-1845699

PATIENT
  Age: 43 Year
  Sex: Female

DRUGS (2)
  1. EXXURA [Suspect]
     Active Substance: PEGINTERFERON ALFA-2A
     Indication: HEPATITIS C
     Route: 058
     Dates: start: 20150512
  2. COPEGUS [Suspect]
     Active Substance: RIBAVIRIN
     Indication: HEPATITIS C
     Dosage: 5 TALETS DAILY
     Route: 048
     Dates: start: 20150512

REACTIONS (3)
  - Colitis [Unknown]
  - Pancreatic enlargement [Unknown]
  - Pain [Unknown]
